FAERS Safety Report 8423733-9 (Version None)
Quarter: 2012Q2

REPORT INFORMATION
  Report Type: 
  Country: None (occurrence: None)
  Receive Date: 20120608
  Receipt Date: 20111122
  Transmission Date: 20120825
  Serious: No
  Sender: FDA-Public Use
  Company Number: US-ASTRAZENECA-2011SE59110

PATIENT
  Age: 75 Year
  Sex: Male

DRUGS (2)
  1. CARDURA [Concomitant]
  2. ATACAND [Suspect]
     Route: 048

REACTIONS (4)
  - DRUG INTOLERANCE [None]
  - DRUG INEFFECTIVE [None]
  - ADVERSE EVENT [None]
  - DRUG DOSE OMISSION [None]
